FAERS Safety Report 13785213 (Version 1)
Quarter: 2017Q3

REPORT INFORMATION
  Report Type: Spontaneous
  Country: FR (occurrence: FR)
  Receive Date: 20170725
  Receipt Date: 20170725
  Transmission Date: 20171127
  Serious: Yes (Hospitalization)
  Sender: FDA-Public Use
  Company Number: FR-ROCHE-1968198

PATIENT
  Age: 24 Year
  Sex: Male

DRUGS (13)
  1. KARDEGIC [Concomitant]
     Active Substance: ASPIRIN LYSINE
     Dosage: 1 IN THE MORNING
     Route: 065
  2. DOLIPRANE [Concomitant]
     Active Substance: ACETAMINOPHEN
     Dosage: IF NEEDED
     Route: 065
  3. UVEDOSE [Concomitant]
     Active Substance: CHOLECALCIFEROL
     Route: 065
  4. LEDERFOLINE [Concomitant]
     Active Substance: LEUCOVORIN CALCIUM
     Dosage: 1 TABLET IN THE MORNING
     Route: 065
  5. PANTOPRAZOLE [Concomitant]
     Active Substance: PANTOPRAZOLE
     Dosage: 1 IN THE EVENING
     Route: 065
  6. CELLCEPT [Concomitant]
     Active Substance: MYCOPHENOLATE MOFETIL\MYCOPHENOLATE MOFETIL HYDROCHLORIDE
     Dosage: 1 G MORNING AND EVENING
     Route: 065
  7. CYMEVAN [Suspect]
     Active Substance: GANCICLOVIR
     Indication: CYTOMEGALOVIRUS INFECTION
     Dosage: LYOPHILISATE FOR PARENTERAL USE (INFUSION)
     Route: 042
     Dates: start: 20170616
  8. PROGRAF [Suspect]
     Active Substance: TACROLIMUS\TACROLIMUS ANHYDROUS
     Indication: HEART TRANSPLANT
     Route: 048
     Dates: start: 20170616
  9. PROGRAF [Suspect]
     Active Substance: TACROLIMUS\TACROLIMUS ANHYDROUS
     Dosage: MORNING AND EVENING
     Route: 048
  10. BACTRIM [Concomitant]
     Active Substance: SULFAMETHOXAZOLE\TRIMETHOPRIM
     Dosage: 1 TABLET IN THE MORNING ON MONDAY, WEDNESDAY, FRIDAY
     Route: 065
  11. PRAVASTATIN. [Concomitant]
     Active Substance: PRAVASTATIN
     Dosage: 1 IN THE EVENING
     Route: 065
  12. BISOCE [Concomitant]
     Active Substance: BISOPROLOL
     Dosage: 1 IN THE MORNING
     Route: 065
  13. CORTANCYL [Concomitant]
     Active Substance: PREDNISONE
     Dosage: 1 IN THE MORNING
     Route: 065

REACTIONS (2)
  - Psychotic disorder [Not Recovered/Not Resolved]
  - Hallucinations, mixed [Not Recovered/Not Resolved]

NARRATIVE: CASE EVENT DATE: 20170619
